FAERS Safety Report 4332849-8 (Version None)
Quarter: 2004Q1

REPORT INFORMATION
  Report Type: 
  Country: None (occurrence: None)
  Receive Date: 20040330
  Receipt Date: 20040318
  Transmission Date: 20041129
  Serious: Yes (Hospitalization)
  Sender: FDA-Public Use
  Company Number: F03200400021

PATIENT
  Age: 51 Year
  Sex: Male
  Weight: 79.9 kg

DRUGS (10)
  1. ELOXATIN [Suspect]
     Indication: NON-HODGKIN'S LYMPHOMA RECURRENT
     Dosage: 254 MG OTHER - INTRAVENOUS NOS
     Route: 042
     Dates: start: 20040210, end: 20040210
  2. GEMCITABINE - SOLUTION [Suspect]
     Indication: NON-HODGKIN'S LYMPHOMA RECURRENT
     Dosage: INTRAVENOUS NOS
     Route: 042
     Dates: start: 20040210, end: 20040210
  3. DEXAMETHASONE [Concomitant]
     Dosage: 40 MG OTHER - ORAL
     Route: 048
     Dates: start: 20040122, end: 20040211
  4. FLUCONAZOLE [Concomitant]
  5. ACYCLOVIR [Concomitant]
  6. OXYCODONE HCL [Concomitant]
  7. ROFECOXIB [Concomitant]
  8. OXYCODONE HCL [Concomitant]
  9. ALPRAZOLAM [Concomitant]
  10. SULFONOMIDES/TRIMETHOPRIM [Concomitant]

REACTIONS (5)
  - BLOOD LACTATE DEHYDROGENASE INCREASED [None]
  - MALIGNANT NEOPLASM PROGRESSION [None]
  - NON-HODGKIN'S LYMPHOMA [None]
  - PNEUMONIA [None]
  - THROMBOCYTOPENIA [None]
